FAERS Safety Report 7996686 (Version 9)
Quarter: 2017Q3

REPORT INFORMATION
  Report Type: Spontaneous
  Country: US (occurrence: US)
  Receive Date: 20110617
  Receipt Date: 20170731
  Transmission Date: 20171128
  Serious: Yes (Hospitalization, Other)
  Sender: FDA-Public Use
  Company Number: US-ASTRAZENECA-2010SE45395

PATIENT
  Age: 70 Year
  Sex: Female
  Weight: 84.8 kg

DRUGS (7)
  1. ALBUTEROL. [Concomitant]
     Active Substance: ALBUTEROL
     Indication: ASTHMA
     Dosage: BID
     Route: 055
  2. SYMBICORT [Suspect]
     Active Substance: BUDESONIDE\FORMOTEROL FUMARATE DIHYDRATE
     Indication: ASTHMA
     Dosage: 160/4.5 MCG USED IT IF SHE WAS WHEEZING BADLY AS REQUIRED
     Route: 055
  3. PLAVIX [Concomitant]
     Active Substance: CLOPIDOGREL BISULFATE
     Indication: THROMBOSIS PROPHYLAXIS
  4. SYMBICORT [Suspect]
     Active Substance: BUDESONIDE\FORMOTEROL FUMARATE DIHYDRATE
     Indication: ASTHMA
     Dosage: SHE ONLY TOOK HER MEDICINES WHEN SHE WHEEZES AND SOMETIMES TAKES ONLY TWO PUFFS A DAY AS REQUIRED
     Route: 055
     Dates: end: 20170710
  5. CRESTOR [Suspect]
     Active Substance: ROSUVASTATIN CALCIUM
     Indication: BLOOD CHOLESTEROL ABNORMAL
     Route: 048
  6. SYMBICORT [Suspect]
     Active Substance: BUDESONIDE\FORMOTEROL FUMARATE DIHYDRATE
     Indication: ASTHMA
     Dosage: 160/4.5 MICROGRAMS, 2 PUFFS TWICE DAILY
     Route: 055
     Dates: start: 2008
  7. NEXIUM [Suspect]
     Active Substance: ESOMEPRAZOLE MAGNESIUM
     Indication: GASTROOESOPHAGEAL REFLUX DISEASE
     Route: 048

REACTIONS (24)
  - Intentional product misuse [Unknown]
  - Seasonal allergy [Unknown]
  - Malaise [Unknown]
  - Weight decreased [Unknown]
  - Heart rate decreased [Unknown]
  - Loss of consciousness [Unknown]
  - Asthma [Unknown]
  - Muscular weakness [Unknown]
  - Arthritis infective [Unknown]
  - Loss of personal independence in daily activities [Unknown]
  - Gastrooesophageal reflux disease [Unknown]
  - Blood cholesterol abnormal [Unknown]
  - Hand fracture [Unknown]
  - Fall [Unknown]
  - Cyst [Unknown]
  - Wheezing [Unknown]
  - Limb injury [Unknown]
  - Ear disorder [Unknown]
  - Tremor [Unknown]
  - Drug dose omission [Unknown]
  - Seizure [Unknown]
  - Body height decreased [Unknown]
  - Dyspnoea [Unknown]
  - Peripheral swelling [Unknown]

NARRATIVE: CASE EVENT DATE: 2010
